FAERS Safety Report 14340028 (Version 2)
Quarter: 2018Q3

REPORT INFORMATION
  Report Type: Report from Study
  Country: ES (occurrence: ES)
  Receive Date: 20171231
  Receipt Date: 20180812
  Transmission Date: 20181010
  Serious: Yes (Other)
  Sender: FDA-Public Use
  Company Number: ES-TEVA-2017-ES-838543

PATIENT
  Age: 78 Year
  Sex: Male
  Weight: 92 kg

DRUGS (13)
  1. MONUROL [Suspect]
     Active Substance: FOSFOMYCIN TROMETHAMINE
     Indication: CALCULUS BLADDER
     Route: 048
  2. SOLOSTAR [Suspect]
     Active Substance: DEVICE
     Dates: start: 20171031
  3. LANTUS SOLOSTAR [Suspect]
     Active Substance: INSULIN GLARGINE
     Indication: TYPE 2 DIABETES MELLITUS
     Dosage: 12 IU (INTERNATIONAL UNIT) DAILY;
     Route: 051
  4. REPAGLINIDE. [Suspect]
     Active Substance: REPAGLINIDE
     Indication: TYPE 2 DIABETES MELLITUS
     Dosage: 0?1?1
     Route: 048
  5. RANITIDINE. [Concomitant]
     Active Substance: RANITIDINE
     Dosage: 1?0?1
     Route: 048
  6. ADIRO [Suspect]
     Active Substance: ASPIRIN
     Indication: CARDIAC DISORDER
     Route: 048
  7. SOLOSTAR [Suspect]
     Active Substance: DEVICE
     Indication: DIABETES MELLITUS
     Dates: end: 201710
  8. SINTROM [Suspect]
     Active Substance: ACENOCOUMAROL
     Indication: CARDIAC DISORDER
     Route: 048
  9. LANTUS SOLOSTAR [Suspect]
     Active Substance: INSULIN GLARGINE
     Indication: DIABETES MELLITUS
     Route: 058
     Dates: end: 201710
  10. LANTUS SOLOSTAR [Suspect]
     Active Substance: INSULIN GLARGINE
     Indication: DIABETES MELLITUS
     Route: 058
     Dates: start: 20171031
  11. LANTUS SOLOSTAR [Suspect]
     Active Substance: INSULIN GLARGINE
     Dosage: 11 IU (INTERNATIONAL UNIT) DAILY;
     Route: 058
     Dates: start: 20171031
  12. ABASAGLAR [Suspect]
     Active Substance: INSULIN GLARGINE
     Route: 058
     Dates: end: 20171030
  13. ORFIDAL [Concomitant]
     Active Substance: LORAZEPAM
     Route: 065

REACTIONS (33)
  - Insomnia [Unknown]
  - Pain in extremity [Recovered/Resolved]
  - Limb discomfort [Recovering/Resolving]
  - Dizziness [Unknown]
  - Headache [Recovered/Resolved]
  - Hyperglycaemia [Recovered/Resolved]
  - Chest pain [Recovered/Resolved]
  - Restlessness [Recovered/Resolved]
  - Gait disturbance [Recovering/Resolving]
  - Penis injury [Recovering/Resolving]
  - Lung disorder [Unknown]
  - Erythema [Unknown]
  - Blood glucose increased [Unknown]
  - Dysgeusia [Recovering/Resolving]
  - Diarrhoea [Recovered/Resolved]
  - Testicular disorder [Recovered/Resolved]
  - Colitis [Recovered/Resolved]
  - Bladder disorder [Unknown]
  - Renal pain [Recovered/Resolved]
  - Fatigue [Recovering/Resolving]
  - Joint swelling [Recovering/Resolving]
  - Decreased appetite [Recovering/Resolving]
  - Asthenia [Recovered/Resolved]
  - Fluid retention [Recovering/Resolving]
  - Visual impairment [Not Recovered/Not Resolved]
  - Hypoglycaemia [Recovered/Resolved]
  - Condition aggravated [Recovered/Resolved]
  - Malaise [Recovered/Resolved]
  - Anxiety [Recovered/Resolved]
  - Nausea [Recovered/Resolved]
  - Food aversion [Recovered/Resolved]
  - Fatigue [Recovering/Resolving]
  - Calculus bladder [Recovering/Resolving]

NARRATIVE: CASE EVENT DATE: 2016
